FAERS Safety Report 4363402-8 (Version None)
Quarter: 2004Q2

REPORT INFORMATION
  Report Type: 
  Country: None (occurrence: None)
  Receive Date: 20040524
  Receipt Date: 20040520
  Transmission Date: 20050107
  Serious: No
  Sender: FDA-Public Use
  Company Number: US-GLAXOSMITHKLINE-A0511608A

PATIENT

DRUGS (1)
  1. WELLBUTRIN [Suspect]
     Indication: EX-SMOKER
     Dosage: 300MG PER DAY
     Route: 048

REACTIONS (1)
  - MEDICATION ERROR [None]
